FAERS Safety Report 19842100 (Version 1)
Quarter: 2021Q3

REPORT INFORMATION
  Report Type: Spontaneous
  Country: SI (occurrence: SI)
  Receive Date: 20210915
  Receipt Date: 20210915
  Transmission Date: 20211014
  Serious: Yes (Other)
  Sender: FDA-Public Use
  Company Number: SI-INCYTE CORPORATION-2021IN008355

PATIENT

DRUGS (3)
  1. ASA [Concomitant]
     Active Substance: ASPIRIN
     Indication: PRODUCT USED FOR UNKNOWN INDICATION
     Dosage: 100 MG, QD
     Route: 065
  2. JAKAVI [Suspect]
     Active Substance: RUXOLITINIB
     Dosage: 20 MG (2X1)
     Route: 065
     Dates: start: 201901
  3. JAKAVI [Suspect]
     Active Substance: RUXOLITINIB
     Indication: MYELOFIBROSIS
     Dosage: 10 MG (5MGX2)
     Route: 065
     Dates: start: 201807

REACTIONS (8)
  - Anaemia [Unknown]
  - White blood cell count increased [Unknown]
  - Thrombocytopenia [Unknown]
  - Blood lactate dehydrogenase increased [Unknown]
  - Myelofibrosis [Unknown]
  - Gingival bleeding [Unknown]
  - Malignant neoplasm progression [Unknown]
  - Blast cell count increased [Unknown]

NARRATIVE: CASE EVENT DATE: 201902
